FAERS Safety Report 7348536-8 (Version None)
Quarter: 2011Q1

REPORT INFORMATION
  Report Type: 
  Country: None (occurrence: None)
  Receive Date: 20110314
  Receipt Date: 20110304
  Transmission Date: 20110831
  Serious: Yes (Hospitalization)
  Sender: FDA-Public Use
  Company Number: US-BIOGENIDEC-2011BI005291

PATIENT
  Age: 65 Year
  Sex: Female

DRUGS (1)
  1. TYSABRI [Suspect]
     Indication: MULTIPLE SCLEROSIS
     Route: 042
     Dates: start: 20071016

REACTIONS (6)
  - PYREXIA [None]
  - RESPIRATION ABNORMAL [None]
  - POLLAKIURIA [None]
  - FALL [None]
  - CHILLS [None]
  - ABASIA [None]
